FAERS Safety Report 5726065-2 (Version None)
Quarter: 2008Q2

REPORT INFORMATION
  Report Type: 
  Country: None (occurrence: None)
  Receive Date: 20080501
  Receipt Date: 20080501
  Transmission Date: 20081010
  Serious: Yes (Other)
  Sender: FDA-Public Use
  Company Number: None

PATIENT
  Sex: Female
  Weight: 90.7194 kg

DRUGS (1)
  1. YAZ [Suspect]
     Indication: BLOOD PRESSURE INCREASED
     Dosage: 1 DAILY PO
     Route: 048
     Dates: start: 20070401, end: 20070801

REACTIONS (1)
  - BLOOD PRESSURE INCREASED [None]
